FAERS Safety Report 15403665 (Version 2)
Quarter: 2022Q3

REPORT INFORMATION
  Report Type: Spontaneous
  Country: CA (occurrence: CA)
  Receive Date: 20180919
  Receipt Date: 20220909
  Transmission Date: 20221027
  Serious: Yes (Other)
  Sender: FDA-Public Use
  Company Number: CA-PFIZER INC-2018365530

PATIENT
  Age: 57 Year
  Sex: Male

DRUGS (5)
  1. METHOTREXATE SODIUM [Suspect]
     Active Substance: METHOTREXATE SODIUM
     Dosage: 15 MG, WEEKLY
     Route: 048
     Dates: start: 201703
  2. BUDESONIDE [Suspect]
     Active Substance: BUDESONIDE
     Dosage: UNK
     Dates: start: 2017
  3. SIMPONI [Suspect]
     Active Substance: GOLIMUMAB
     Dosage: UNK
     Dates: start: 2017
  4. LOPERAMIDE [Concomitant]
     Active Substance: LOPERAMIDE
     Dosage: UNK
     Dates: start: 2017
  5. INFLECTRA [Concomitant]
     Active Substance: INFLIXIMAB-DYYB
     Indication: Colitis ulcerative
     Dosage: 5 MG/KG, CYCLIC (EVERY 0, 2, 6, WEEKS, THEN EVERY 8 WEEKS)
     Route: 042
     Dates: start: 20180913

REACTIONS (3)
  - Diarrhoea haemorrhagic [Not Recovered/Not Resolved]
  - Drug ineffective [Unknown]
  - Product use issue [Unknown]
